FAERS Safety Report 12728144 (Version 1)
Quarter: 2016Q3

REPORT INFORMATION
  Report Type: Spontaneous
  Country: US (occurrence: US)
  Receive Date: 20160909
  Receipt Date: 20160909
  Transmission Date: 20161109
  Serious: Yes (Other)
  Sender: FDA-Public Use
  Company Number: US-009507513-1609USA000631

PATIENT

DRUGS (3)
  1. CARMUSTINE [Concomitant]
     Active Substance: CARMUSTINE
     Indication: GLIOBLASTOMA
     Dosage: UNK
     Dates: start: 2009
  2. TEMODAR [Suspect]
     Active Substance: TEMOZOLOMIDE
     Indication: GLIOBLASTOMA
     Dosage: 9 CYCLES
  3. O6-BENZYLGUANINE [Suspect]
     Active Substance: 6-O-BENZYLGUANINE
     Indication: GLIOBLASTOMA
     Dosage: UNK

REACTIONS (1)
  - Myelodysplastic syndrome [Recovering/Resolving]
